FAERS Safety Report 15559052 (Version 13)
Quarter: 2025Q2

REPORT INFORMATION
  Report Type: Report from Study
  Country: BR (occurrence: BR)
  Receive Date: 20181029
  Receipt Date: 20250630
  Transmission Date: 20250716
  Serious: Yes (Other)
  Sender: BIOGEN
  Company Number: BR-BIOGEN-2018BI00651066

PATIENT
  Sex: Male
  Weight: 66 kg

DRUGS (10)
  1. TYSABRI [Suspect]
     Active Substance: NATALIZUMAB
     Indication: Multiple sclerosis
     Dosage: INFUSED FOR OVER 1 HOUR
     Route: 050
     Dates: start: 20141018
  2. TYSABRI [Suspect]
     Active Substance: NATALIZUMAB
     Route: 050
     Dates: start: 201410, end: 202002
  3. TYSABRI [Suspect]
     Active Substance: NATALIZUMAB
     Route: 050
     Dates: start: 202009
  4. TYSABRI [Suspect]
     Active Substance: NATALIZUMAB
     Route: 050
     Dates: start: 202010, end: 202012
  5. TYSABRI [Suspect]
     Active Substance: NATALIZUMAB
     Route: 050
     Dates: start: 202102
  6. TYSABRI [Suspect]
     Active Substance: NATALIZUMAB
     Route: 050
     Dates: start: 2012
  7. TYSABRI [Suspect]
     Active Substance: NATALIZUMAB
     Dosage: 300MG/15ML
     Route: 050
     Dates: start: 2012
  8. TYSABRI [Suspect]
     Active Substance: NATALIZUMAB
     Route: 050
     Dates: start: 20141014
  9. TYSABRI [Suspect]
     Active Substance: NATALIZUMAB
     Route: 050
     Dates: start: 2023
  10. TYSABRI [Suspect]
     Active Substance: NATALIZUMAB
     Dosage: 300MG/25ML 20MG/ML
     Route: 050
     Dates: start: 2012

REACTIONS (15)
  - Ophthalmic herpes zoster [Recovered/Resolved]
  - Herpes zoster [Recovered/Resolved]
  - Decreased immune responsiveness [Unknown]
  - Multiple sclerosis relapse [Not Recovered/Not Resolved]
  - Vitamin D deficiency [Not Recovered/Not Resolved]
  - COVID-19 [Recovered/Resolved]
  - Fall [Recovered/Resolved]
  - Ligament sprain [Unknown]
  - Peripheral swelling [Unknown]
  - Pain in extremity [Unknown]
  - Urinary incontinence [Not Recovered/Not Resolved]
  - Asthenia [Not Recovered/Not Resolved]
  - Pain [Not Recovered/Not Resolved]
  - Multiple sclerosis [Unknown]
  - Anxiety [Unknown]

NARRATIVE: CASE EVENT DATE: 20170101
